FAERS Safety Report 15680947 (Version 1)
Quarter: 2018Q4

REPORT INFORMATION
  Report Type: Spontaneous
  Country: US (occurrence: US)
  Receive Date: 20181203
  Receipt Date: 20181203
  Transmission Date: 20190205
  Serious: Yes (Other)
  Sender: FDA-Public Use
  Company Number: US-MYLANLABS-2018M1089508

PATIENT
  Sex: Male

DRUGS (1)
  1. MYCOPHENOLATE MOFETIL CAPSULES, USP [Suspect]
     Active Substance: MYCOPHENOLATE MOFETIL
     Indication: GRANULOMATOSIS WITH POLYANGIITIS

REACTIONS (2)
  - Rash [Unknown]
  - Epistaxis [Unknown]
